FAERS Safety Report 7459634-2 (Version None)
Quarter: 2011Q2

REPORT INFORMATION
  Report Type: 
  Country: None (occurrence: None)
  Receive Date: 20110505
  Receipt Date: 20110425
  Transmission Date: 20111010
  Serious: No
  Sender: FDA-Public Use
  Company Number: PHHY2011US27214

PATIENT
  Sex: Female

DRUGS (11)
  1. TOPROL-XL [Concomitant]
  2. CELEBREX [Concomitant]
     Dosage: 50 MG, UNK
  3. NEXIUM [Concomitant]
     Dosage: 20 MG, UNK
  4. VITAMIN D [Concomitant]
  5. TASIGNA [Suspect]
     Indication: CHRONIC MYELOID LEUKAEMIA
     Dosage: 300 MG, BID
     Route: 048
     Dates: start: 20100525
  6. ROBAXIN [Concomitant]
     Dosage: 500 MG, UNK
  7. CRESTOR [Concomitant]
     Dosage: 10 MG, UNK
  8. LUNESTA [Concomitant]
     Dosage: 1 MG, UNK
  9. MULTI-VITAMINS [Concomitant]
  10. ZETIA [Concomitant]
     Dosage: 10 MG, UNK
  11. CLARINEX [Concomitant]
     Dosage: 5 MG, UNK

REACTIONS (1)
  - MUSCLE SPASMS [None]
